FAERS Safety Report 10565681 (Version 2)
Quarter: 2014Q4

REPORT INFORMATION
  Report Type: Spontaneous
  Country: IT (occurrence: IT)
  Receive Date: 20141105
  Receipt Date: 20141125
  Transmission Date: 20150529
  Serious: Yes (Hospitalization)
  Sender: FDA-Public Use
  Company Number: IT-009507513-1410ITA016286

PATIENT
  Age: 46 Year
  Sex: Female

DRUGS (4)
  1. KEPPRA [Concomitant]
     Active Substance: LEVETIRACETAM
     Dosage: 4 DOSE UNIT, FREQUENCY UNKNOWN
     Route: 048
     Dates: start: 201304
  2. TEMODAL [Suspect]
     Active Substance: TEMOZOLOMIDE
     Indication: GLIOMA
     Dosage: 300 MG, QD
     Route: 048
     Dates: start: 201311, end: 20140108
  3. TOPAMAX [Concomitant]
     Active Substance: TOPIRAMATE
     Dosage: 2 DOSE UNIT
     Route: 048
     Dates: start: 201308
  4. ZOLOFT [Concomitant]
     Active Substance: SERTRALINE HYDROCHLORIDE
     Dosage: 1 DOSE UNIT, FREQUENCY WAS UNKNOWN
     Route: 048
     Dates: start: 201304

REACTIONS (2)
  - Pancytopenia [Recovered/Resolved]
  - Petechiae [Recovered/Resolved]

NARRATIVE: CASE EVENT DATE: 20140129
